FAERS Safety Report 20038329 (Version 5)
Quarter: 2022Q2

REPORT INFORMATION
  Report Type: Report from Study
  Country: FR (occurrence: FR)
  Receive Date: 20211105
  Receipt Date: 20220602
  Transmission Date: 20220721
  Serious: Yes (Other)
  Sender: FDA-Public Use
  Company Number: FR-SERVIER-S21011975

PATIENT

DRUGS (7)
  1. PEGASPARGASE [Suspect]
     Active Substance: PEGASPARGASE
     Indication: Acute lymphocytic leukaemia
     Dosage: UNK
     Route: 042
  2. METHOTREXATE [Suspect]
     Active Substance: METHOTREXATE
     Indication: Acute lymphocytic leukaemia
     Dosage: 9999 MG, EVERY 6 WEEKS
     Route: 042
     Dates: start: 20200924
  3. METHOTREXATE [Suspect]
     Active Substance: METHOTREXATE
     Dosage: 15 MG, EVERY 6 WEEKS
     Route: 037
     Dates: start: 20201107
  4. METHOTREXATE [Suspect]
     Active Substance: METHOTREXATE
     Dosage: 50 MG, WEEKLY
     Route: 048
     Dates: start: 20200904
  5. MERCAPTOPURINE [Suspect]
     Active Substance: MERCAPTOPURINE
     Indication: Acute lymphocytic leukaemia
     Dosage: 101 MG (50 MG/M?), DAILY
     Route: 048
     Dates: start: 20200904
  6. DEXAMETHASONE [Suspect]
     Active Substance: DEXAMETHASONE
     Indication: Acute lymphocytic leukaemia
     Dosage: 18 MG, D8, D28: INDUCTION, AND DECREASED D35
     Route: 048
     Dates: start: 20200219, end: 20200311
  7. PREDNISOLONE [Suspect]
     Active Substance: PREDNISOLONE
     Indication: Acute lymphocytic leukaemia
     Dosage: 110 MG, D1 TO D7
     Route: 048
     Dates: start: 20200212, end: 20200218

REACTIONS (1)
  - Osteonecrosis [Recovered/Resolved]

NARRATIVE: CASE EVENT DATE: 20210525
